FAERS Safety Report 5829603-4 (Version None)
Quarter: 2008Q3

REPORT INFORMATION
  Report Type: 
  Country: None (occurrence: None)
  Receive Date: 20080731
  Receipt Date: 20080721
  Transmission Date: 20090109
  Serious: Yes (Life-Threatening, Hospitalization, Other)
  Sender: FDA-Public Use
  Company Number: DE-PFIZER INC-2008061340

PATIENT
  Sex: Male
  Weight: 98 kg

DRUGS (5)
  1. INSPRA [Suspect]
     Indication: CARDIAC FAILURE
     Dosage: DAILY DOSE:50MG
     Route: 048
     Dates: start: 20071001, end: 20080331
  2. XIPAMIDE [Concomitant]
     Route: 048
     Dates: start: 20071001, end: 20080405
  3. TOREM [Concomitant]
     Route: 048
     Dates: start: 20071001, end: 20080405
  4. BENALAPRIL [Concomitant]
     Route: 048
     Dates: start: 20071001, end: 20080405
  5. CARVEDILOL [Concomitant]
     Route: 048
     Dates: start: 20071001, end: 20080405

REACTIONS (4)
  - BLOOD CREATININE INCREASED [None]
  - DEHYDRATION [None]
  - GASTROENTERITIS [None]
  - RENAL FAILURE ACUTE [None]
